FAERS Safety Report 4705669-X (Version None)
Quarter: 2005Q2

REPORT INFORMATION
  Report Type: 
  Country: None (occurrence: None)
  Receive Date: 20050629
  Receipt Date: 20050624
  Transmission Date: 20051028
  Serious: Yes (Disabling)
  Sender: FDA-Public Use
  Company Number: SU-2005-003717

PATIENT
  Sex: Male

DRUGS (1)
  1. OLMETEC [Suspect]
     Indication: HYPERTENSION
     Dosage: 40 MG QD PO
     Route: 048
     Dates: end: 20050301

REACTIONS (1)
  - ERECTILE DYSFUNCTION [None]
